FAERS Safety Report 16447043 (Version 2)
Quarter: 2019Q3

REPORT INFORMATION
  Report Type: Spontaneous
  Country: CA (occurrence: CA)
  Receive Date: 20190618
  Receipt Date: 20190711
  Transmission Date: 20191004
  Serious: Yes (Death, Other)
  Sender: FDA-Public Use
  Company Number: CA-SHIRE-CA201917678

PATIENT

DRUGS (3)
  1. CARFILZOMIB;DEXAMETHASONE [Concomitant]
     Indication: PRODUCT USED FOR UNKNOWN INDICATION
  2. GAMMAGARD LIQUID [Suspect]
     Active Substance: HUMAN IMMUNOGLOBULIN G
     Indication: PLASMA CELL MYELOMA
     Dosage: 200 MILLILITER
     Route: 065
     Dates: start: 20190124, end: 20190124
  3. GAMMAGARD LIQUID [Suspect]
     Active Substance: HUMAN IMMUNOGLOBULIN G
     Dosage: 30 GRAM, EVERY 4 WK
     Route: 042

REACTIONS (9)
  - Infusion related reaction [Unknown]
  - Febrile nonhaemolytic transfusion reaction [Unknown]
  - Anaphylactic reaction [Unknown]
  - Oxygen saturation decreased [Unknown]
  - Stress cardiomyopathy [Unknown]
  - Chest discomfort [Unknown]
  - Cardiac arrest [Unknown]
  - Troponin increased [Unknown]
  - Dyspnoea [Unknown]
